FAERS Safety Report 14983772 (Version 2)
Quarter: 2018Q2

REPORT INFORMATION
  Report Type: Spontaneous
  Country: US (occurrence: US)
  Receive Date: 20180607
  Receipt Date: 20180611
  Transmission Date: 20180711
  Serious: No
  Sender: FDA-Public Use
  Company Number: US-PFIZER INC-2018230992

PATIENT
  Age: 97 Year
  Sex: Male
  Weight: 86.17 kg

DRUGS (2)
  1. TRIAZOLAM. [Suspect]
     Active Substance: TRIAZOLAM
     Indication: INSOMNIA
     Dosage: 0.375 MG, UNK (1.5 TABLETS)
     Dates: start: 20180602, end: 20180605
  2. TRIAZOLAM. [Suspect]
     Active Substance: TRIAZOLAM
     Indication: BURNING SENSATION
     Dosage: 0.375 MG, 1X/DAY (1.5 TABLETS EVERY NIGHT)

REACTIONS (4)
  - Product physical issue [Unknown]
  - Intentional product misuse [Unknown]
  - Poor quality drug administered [Unknown]
  - Drug ineffective [Unknown]

NARRATIVE: CASE EVENT DATE: 20180602
